FAERS Safety Report 15075168 (Version 1)
Quarter: 2018Q2

REPORT INFORMATION
  Report Type: Spontaneous
  Country: US (occurrence: US)
  Receive Date: 20180627
  Receipt Date: 20180627
  Transmission Date: 20180711
  Serious: Yes (Hospitalization)
  Sender: FDA-Public Use
  Company Number: US-SAOL THERAPEUTICS-2017SAO01249

PATIENT
  Age: 55 Year
  Sex: Female

DRUGS (5)
  1. SUFENTANIL [Suspect]
     Active Substance: SUFENTANIL
     Dosage: 75 ?G, \DAY
     Route: 037
  2. BACLOFEN. [Suspect]
     Active Substance: BACLOFEN
     Indication: POST LAMINECTOMY SYNDROME
  3. DILAUDID [Suspect]
     Active Substance: HYDROMORPHONE HYDROCHLORIDE
     Dosage: 12.5 MG, \DAY
     Route: 037
  4. BACLOFEN. [Suspect]
     Active Substance: BACLOFEN
     Indication: PAIN
     Dosage: 12.58 ?G, \DAY
     Route: 037
  5. CLONIDINE. [Suspect]
     Active Substance: CLONIDINE
     Dosage: 62.9 ?G, \DAY
     Route: 037

REACTIONS (5)
  - Device failure [Unknown]
  - Off label use [Unknown]
  - Pain [Unknown]
  - Device alarm issue [Unknown]
  - Drug withdrawal syndrome [Unknown]

NARRATIVE: CASE EVENT DATE: 201707
